FAERS Safety Report 12432911 (Version 2)
Quarter: 2019Q1

REPORT INFORMATION
  Report Type: Spontaneous
  Country: FR (occurrence: FR)
  Receive Date: 20160603
  Receipt Date: 20190220
  Transmission Date: 20190417
  Serious: Yes (Disabling, Congenital Anomaly, Other)
  Sender: FDA-Public Use
  Company Number: FR-ABBVIE-16P-056-1642685-00

PATIENT
  Sex: Male

DRUGS (2)
  1. DEPAKINE CHRONO [Suspect]
     Active Substance: VALPROATE SODIUM
     Indication: MATERNAL EXPOSURE TIMING UNSPECIFIED
     Route: 064
  2. ALEPSAL [Suspect]
     Active Substance: ATROPA BELLADONNA\CAFFEINE\PHENOBARBITAL
     Indication: MATERNAL EXPOSURE TIMING UNSPECIFIED
     Route: 064

REACTIONS (20)
  - Hypermetropia [Unknown]
  - Respiratory tract infection [Unknown]
  - Dysmorphism [Unknown]
  - Autism spectrum disorder [Unknown]
  - Cognitive disorder [Unknown]
  - Jaundice [Unknown]
  - Pelvic deformity [Unknown]
  - Laryngitis [Unknown]
  - Foetal exposure during pregnancy [Unknown]
  - Limb deformity [Unknown]
  - Speech disorder developmental [Unknown]
  - Muscle tone disorder [Unknown]
  - Ear infection [Unknown]
  - Knee deformity [Unknown]
  - Intellectual disability [Unknown]
  - Memory impairment [Unknown]
  - Learning disability [Unknown]
  - Nasal obstruction [Unknown]
  - Rhinitis [Unknown]
  - Foetal anticonvulsant syndrome [Unknown]

NARRATIVE: CASE EVENT DATE: 2005
